FAERS Safety Report 19350024 (Version 3)
Quarter: 2021Q4

REPORT INFORMATION
  Report Type: Spontaneous
  Country: KR (occurrence: KR)
  Receive Date: 20210531
  Receipt Date: 20211124
  Transmission Date: 20220303
  Serious: Yes (Other)
  Sender: FDA-Public Use
  Company Number: KR-KYOWAKIRIN-2021AKK009042

PATIENT
  Age: 56 Year
  Sex: Female

DRUGS (20)
  1. FILGRASTIM [Suspect]
     Active Substance: FILGRASTIM
     Indication: Product used for unknown indication
     Dosage: 300 UNK
     Route: 065
     Dates: start: 20170907
  2. TRASTUZUMAB [Concomitant]
     Active Substance: TRASTUZUMAB
     Indication: Product used for unknown indication
     Dosage: UNK
     Route: 065
     Dates: start: 20170828, end: 20170828
  3. TRASTUZUMAB [Concomitant]
     Active Substance: TRASTUZUMAB
     Dosage: UNK
     Route: 065
     Dates: start: 20170919
  4. DOCETAXEL [Concomitant]
     Active Substance: DOCETAXEL
     Indication: Product used for unknown indication
     Dosage: 75 UNK
     Route: 065
     Dates: start: 20170828
  5. PERTUZUMAB [Concomitant]
     Active Substance: PERTUZUMAB
     Indication: Product used for unknown indication
     Dosage: 420 MILLIGRAM
     Route: 065
     Dates: start: 20170919
  6. PERTUZUMAB [Concomitant]
     Active Substance: PERTUZUMAB
     Dosage: 840 UNK
     Route: 065
     Dates: start: 20170828
  7. ACECLOFENAC [Concomitant]
     Active Substance: ACECLOFENAC
     Indication: Product used for unknown indication
     Dosage: 200 MILLIGRAM
     Route: 065
     Dates: start: 20170828
  8. CARBOPLATIN [Concomitant]
     Active Substance: CARBOPLATIN
     Indication: Product used for unknown indication
     Dosage: 450 MG
     Route: 065
     Dates: start: 20170828, end: 20170828
  9. CARBOPLATIN [Concomitant]
     Active Substance: CARBOPLATIN
     Dosage: 591 MG
     Route: 065
     Dates: start: 20170919, end: 20170919
  10. CARBOPLATIN [Concomitant]
     Active Substance: CARBOPLATIN
     Dosage: 600 MG
     Route: 065
     Dates: start: 20171012, end: 20171214
  11. CHLORPHENIRAMINE MALEATE [Concomitant]
     Active Substance: CHLORPHENIRAMINE MALEATE
     Indication: Product used for unknown indication
     Dosage: 4 MG
     Route: 065
     Dates: start: 20170828
  12. DEXAMETHASONE [Concomitant]
     Active Substance: DEXAMETHASONE
     Indication: Product used for unknown indication
     Dosage: 20 MILLIGRAM
     Route: 065
     Dates: start: 20170828
  13. DEXAMETHASONE [Concomitant]
     Active Substance: DEXAMETHASONE
     Dosage: 20 MILLIGRAM
     Route: 065
     Dates: start: 20170828
  14. LANSOPRAZOLE [Concomitant]
     Active Substance: LANSOPRAZOLE
     Indication: Product used for unknown indication
     Dosage: 15 MILLIGRAM
     Route: 065
     Dates: start: 20170828
  15. LOPERAMIDE [Concomitant]
     Active Substance: LOPERAMIDE
     Indication: Product used for unknown indication
     Dosage: 6 MILLIGRAM
     Route: 065
     Dates: start: 20170828
  16. METOCLOPRAMIDE [Concomitant]
     Active Substance: METOCLOPRAMIDE
     Indication: Product used for unknown indication
     Dosage: 15 MILLIGRAM
     Route: 065
     Dates: start: 20170828
  17. PALONOSETRON [Concomitant]
     Active Substance: PALONOSETRON
     Indication: Product used for unknown indication
     Dosage: 0.25 MILLIGRAM
     Route: 065
     Dates: start: 20170828
  18. ACETAMINOPHEN [Concomitant]
     Active Substance: ACETAMINOPHEN
     Indication: Product used for unknown indication
     Dosage: 650 MILLIGRAM
     Route: 065
     Dates: start: 20170828
  19. PRAMOXINE [Concomitant]
     Active Substance: PRAMOXINE
     Indication: Product used for unknown indication
     Dosage: UNK
     Route: 065
     Dates: start: 20170907
  20. TIROPRAMIDE [Concomitant]
     Active Substance: TIROPRAMIDE
     Indication: Product used for unknown indication
     Dosage: 300 MILLIGRAM
     Route: 065
     Dates: start: 20170828

REACTIONS (8)
  - Neuropathy peripheral [Recovering/Resolving]
  - Neutropenia [Recovered/Resolved]
  - Febrile neutropenia [Recovered/Resolved]
  - Urinary incontinence [Recovering/Resolving]
  - Bladder irritation [Recovering/Resolving]
  - Decreased appetite [Recovering/Resolving]
  - Upper respiratory tract infection [Recovered/Resolved]
  - Pyrexia [Recovered/Resolved]

NARRATIVE: CASE EVENT DATE: 20170907
